FAERS Safety Report 13387072 (Version 1)
Quarter: 2017Q1

REPORT INFORMATION
  Report Type: Spontaneous
  Country: NL (occurrence: NL)
  Receive Date: 20170330
  Receipt Date: 20170330
  Transmission Date: 20170429
  Serious: Yes (Hospitalization, Other)
  Sender: FDA-Public Use
  Company Number: NL-ASTELLAS-2017US011034

PATIENT
  Sex: Male

DRUGS (1)
  1. PROGRAFT [Suspect]
     Active Substance: TACROLIMUS
     Indication: PRODUCT USED FOR UNKNOWN INDICATION
     Dosage: UNK UNK, TWICE DAILY
     Route: 065
     Dates: start: 201612

REACTIONS (3)
  - Hepatic encephalopathy [Unknown]
  - Cerebral haemorrhage [Unknown]
  - Epilepsy [Unknown]
